FAERS Safety Report 4883325-5 (Version None)
Quarter: 2006Q1

REPORT INFORMATION
  Report Type: 
  Country: None (occurrence: None)
  Receive Date: 20060118
  Receipt Date: 20060111
  Transmission Date: 20060701
  Serious: Yes (Other)
  Sender: FDA-Public Use
  Company Number: US-GLAXOSMITHKLINE-A0589453A

PATIENT
  Age: 41 Year
  Sex: Male

DRUGS (9)
  1. ZOFRAN [Suspect]
     Indication: SCHIZOPHRENIA
     Dosage: 2MG TWICE PER DAY
     Route: 048
     Dates: start: 20051123
  2. DEPAKOTE [Concomitant]
  3. PRILOSEC [Concomitant]
  4. CLOZARIL [Concomitant]
  5. ZYPREXA [Concomitant]
  6. XANAX [Concomitant]
  7. DOXYCYCLINE [Concomitant]
  8. MIRALAX [Concomitant]
  9. LUVOX [Concomitant]

REACTIONS (10)
  - AGITATION [None]
  - AKATHISIA [None]
  - DROOLING [None]
  - ENERGY INCREASED [None]
  - FAECAL INCONTINENCE [None]
  - OBSESSIVE THOUGHTS [None]
  - PARANOIA [None]
  - SCREAMING [None]
  - THERAPEUTIC RESPONSE UNEXPECTED [None]
  - URINARY INCONTINENCE [None]
